FAERS Safety Report 7980763-9 (Version None)
Quarter: 2011Q4

REPORT INFORMATION
  Report Type: 
  Country: None (occurrence: None)
  Receive Date: 20111214
  Receipt Date: 20111208
  Transmission Date: 20120403
  Serious: Yes (Hospitalization, Other)
  Sender: FDA-Public Use
  Company Number: US-AMGEN-USASP2011055000

PATIENT
  Age: 56 Year
  Sex: Female

DRUGS (12)
  1. ENBREL [Suspect]
     Indication: RHEUMATOID ARTHRITIS
     Dosage: 50 MG, QWK
     Route: 058
     Dates: start: 20110915
  2. FOLIC ACID [Concomitant]
     Dosage: 1 MG, UNK
  3. NAPROSYN [Concomitant]
     Dosage: 500 MG, UNK
  4. ENBREL [Suspect]
     Dosage: 50 MG, QWK
     Dates: start: 20090101
  5. ALLOPURINOL [Concomitant]
     Dosage: 300 MG, UNK
  6. VITAMIN B12                        /00056201/ [Concomitant]
     Dosage: UNK
  7. ENBREL [Suspect]
  8. TREXALL [Concomitant]
     Dosage: 20 MG, QWK
  9. ENBREL [Suspect]
     Dosage: 50 MG, QWK
     Route: 058
     Dates: start: 20090115, end: 20090701
  10. TREXALL [Concomitant]
     Dosage: 1 MG, QWK
     Dates: start: 20080101
  11. CALCIUM [Concomitant]
  12. LISINOPRIL AND HYDROCHLOROTHIAZIDE [Concomitant]
     Dosage: UNK

REACTIONS (4)
  - SYNDACTYLY [None]
  - ORAL INFECTION [None]
  - FINGER DEFORMITY [None]
  - WHITE BLOOD CELL COUNT INCREASED [None]
